FAERS Safety Report 5250840-4 (Version None)
Quarter: 2007Q1

REPORT INFORMATION
  Report Type: 
  Country: None (occurrence: None)
  Receive Date: 20070228
  Receipt Date: 20060714
  Transmission Date: 20070707
  Serious: No
  Sender: FDA-Public Use
  Company Number: US-GLAXOSMITHKLINE-A0612323A

PATIENT
  Sex: Female

DRUGS (2)
  1. LAMICTAL [Suspect]
     Indication: EPILEPSY
     Dosage: 125MG TWICE PER DAY
     Route: 048
     Dates: start: 20040301
  2. DEPAKOTE [Concomitant]

REACTIONS (1)
  - WEIGHT DECREASED [None]
